FAERS Safety Report 17932229 (Version 1)
Quarter: 2020Q2

REPORT INFORMATION
  Report Type: Report from Study
  Country: US (occurrence: US)
  Receive Date: 20200623
  Receipt Date: 20200623
  Transmission Date: 20200714
  Serious: Yes (Death, Hospitalization, Other)
  Sender: FDA-Public Use
  Company Number: US-ACTELION-A-US2019-196837

PATIENT
  Age: 71 Year
  Sex: Female
  Weight: 67.12 kg

DRUGS (5)
  1. OPSUMIT [Suspect]
     Active Substance: MACITENTAN
     Indication: PULMONARY ARTERIAL HYPERTENSION
     Dosage: 10 MG, QD
     Route: 048
     Dates: start: 20190726
  2. ORENITRAM [Suspect]
     Active Substance: TREPROSTINIL
     Indication: PRODUCT USED FOR UNKNOWN INDICATION
     Dosage: .625 MG, TID
     Route: 065
  3. ELIQUIS [Concomitant]
     Active Substance: APIXABAN
  4. OXYGEN. [Concomitant]
     Active Substance: OXYGEN
  5. AMLODIPINE [Concomitant]
     Active Substance: AMLODIPINE BESYLATE

REACTIONS (13)
  - Sinus congestion [Not Recovered/Not Resolved]
  - Oedema peripheral [Unknown]
  - Acute respiratory failure [Unknown]
  - Chest discomfort [Unknown]
  - General physical health deterioration [Unknown]
  - Memory impairment [Unknown]
  - Adverse drug reaction [Unknown]
  - Fatigue [Unknown]
  - Percutaneous coronary intervention [Recovered/Resolved]
  - Dyspnoea [Unknown]
  - Death [Fatal]
  - Oedema [Unknown]
  - Fluid retention [Unknown]

NARRATIVE: CASE EVENT DATE: 20191105
